FAERS Safety Report 21231827 (Version 1)
Quarter: 2022Q3

REPORT INFORMATION
  Report Type: Spontaneous
  Country: LT (occurrence: LT)
  Receive Date: 20220819
  Receipt Date: 20220819
  Transmission Date: 20221026
  Serious: Yes (Other)
  Sender: FDA-Public Use
  Company Number: None

PATIENT
  Age: 63 Year
  Sex: Male
  Weight: 73 kg

DRUGS (27)
  1. CIPROFLOXACIN [Suspect]
     Active Substance: CIPROFLOXACIN
     Indication: Prostatitis
     Dosage: FORM STRENGTH :500 MG  , UNIT DOSE : 500 MG , FREQUENCY TIME : 1 DAY , THERAPY  END DATE : NASK
     Dates: start: 20220622
  2. CALCIUM ACETATE\MAGNESIUM CARBONATE [Concomitant]
     Active Substance: CALCIUM ACETATE\MAGNESIUM CARBONATE
     Indication: Phosphorus metabolism disorder
     Dosage: UNIT DOSE : 3 DF , FREQUENCY TIME : 3 DAY  , DURATION : 3 MONTH
  3. CALCIUM ACETATE\MAGNESIUM CARBONATE [Concomitant]
     Active Substance: CALCIUM ACETATE\MAGNESIUM CARBONATE
     Indication: Calcium metabolism disorder
  4. FOLIC ACID [Concomitant]
     Active Substance: FOLIC ACID
     Indication: Anaemia
     Dosage: FORM STRENGTH : 1 MG , DURATION : 3 MONTH
  5. DOXAZOSIN [Concomitant]
     Active Substance: DOXAZOSIN MESYLATE
     Indication: Myocardial ischaemia
     Dosage: FORM STRENGTH :4 MG  , UNIT DOSE : 8 MG  , FREQUENCY TIME : 2 DAY   , DURATION :3 MONTH
  6. DOXAZOSIN [Concomitant]
     Active Substance: DOXAZOSIN MESYLATE
     Indication: Hypertension
  7. MOXONIDIN-Actavis [Concomitant]
     Indication: Hypertension
     Dosage: MOXONIDIN ,FORM STRENGTH : 0.2 MG , UNIT DOSE :2 DF  , FREQUENCY TIME :  1 DAY  , DURATION :3 MONTH
  8. MOXONIDIN-Actavis [Concomitant]
     Indication: Myocardial ischaemia
  9. ERYTHROPOIETIN [Concomitant]
     Active Substance: ERYTHROPOIETIN
     Indication: Anaemia
     Dosage: 20,000 IU/1 ML , UNIT DOSE : 20000 IU , FREQUENCY TIME :  1 WEEKS , DURATION : 3 MONTH
  10. DIOSMIN\HESPERIDIN [Concomitant]
     Active Substance: DIOSMIN\HESPERIDIN
     Indication: Myocardial ischaemia
     Dosage: FORM STRENGTH : 500 MG , UNIT DOSE : 500 MG , FREQUENCY TIME : 3 DAY   , DURATION :3 MONTH
  11. DIOSMIN\HESPERIDIN [Concomitant]
     Active Substance: DIOSMIN\HESPERIDIN
     Indication: Hypertension
  12. VITAMIN B COMPLEX [Concomitant]
     Active Substance: CYANOCOBALAMIN\DEXPANTHENOL\NIACINAMIDE\PYRIDOXINE HYDROCHLORIDE\RIBOFLAVIN 5^-PHOSPHATE SODIUM\THIA
     Indication: Anaemia
     Dosage: DURATION : 3 MONTH
  13. ATORVASTATIN [Concomitant]
     Active Substance: ATORVASTATIN
     Indication: Myocardial ischaemia
     Dosage: DURATION : 3 MONTH
  14. ATORVASTATIN [Concomitant]
     Active Substance: ATORVASTATIN
     Indication: Hypertension
  15. CLOPIDOGREL [Concomitant]
     Active Substance: CLOPIDOGREL BISULFATE
     Indication: Hypertension
     Dosage: FORM STRENGTH :75 GRAM  , UNIT DOSE : 1 DF , FREQUENCY TIME :  1 DAY  , DURATION :3 MONTH
  16. CLOPIDOGREL [Concomitant]
     Active Substance: CLOPIDOGREL BISULFATE
     Indication: Myocardial ischaemia
  17. SORBISTERIT [Concomitant]
     Indication: Hyperkalaemia
     Dosage: UNIT DOSE :20 GRAM  , FREQUENCY TIME : 4 WEEKS  , DURATION : 3 MONTH
  18. ISMN STADA [Concomitant]
     Indication: Myocardial ischaemia
     Dosage: FORM STRENGTH : 20 MG , UNIT DOSE : 60 MG , FREQUENCY TIME :  1 TOTAL  , DURATION :3 MONTH
  19. ISMN STADA [Concomitant]
     Indication: Hypertension
  20. OLMESARTAN [Concomitant]
     Active Substance: OLMESARTAN
     Indication: Myocardial ischaemia
     Dosage: FORM STRENGTH : 20 MG , UNIT DOSE : 2 DF , FREQUENCY TIME : 1 DAY   , DURATION :3 MONTH
  21. OLMESARTAN [Concomitant]
     Active Substance: OLMESARTAN
     Indication: Hypertension
  22. NIFEDIPINE [Concomitant]
     Active Substance: NIFEDIPINE
     Indication: Hypertension
     Dosage: FORM STRENGTH : 20MG , DURATION : 3 MONTH
  23. NIFEDIPINE [Concomitant]
     Active Substance: NIFEDIPINE
     Indication: Myocardial ischaemia
  24. METOPROLOL [Concomitant]
     Active Substance: METOPROLOL
     Indication: Hypertension
     Dosage: MODIFIED-RELEASE TABLET ,UNIT DOSE : 3 DF , FREQUENCY TIME : 1 DAY  , DURATION : 3 MONTH
  25. METOPROLOL [Concomitant]
     Active Substance: METOPROLOL
     Indication: Myocardial ischaemia
  26. PANTOPRAZOLE SODIUM [Concomitant]
     Active Substance: PANTOPRAZOLE SODIUM
     Indication: Hypertension
     Dosage: FORM STRENGTH : 20 MG , UNIT DOSE : 1 DF , FREQUENCY TIME : 1 DAY   , DURATION :3 MONTH
  27. PANTOPRAZOLE SODIUM [Concomitant]
     Active Substance: PANTOPRAZOLE SODIUM
     Indication: Myocardial ischaemia

REACTIONS (2)
  - Pain in extremity [Recovering/Resolving]
  - Tendon rupture [Recovering/Resolving]

NARRATIVE: CASE EVENT DATE: 20220629
